FAERS Safety Report 21375019 (Version 1)
Quarter: 2022Q3

REPORT INFORMATION
  Report Type: Spontaneous
  Country: US (occurrence: US)
  Receive Date: 20220926
  Receipt Date: 20220926
  Transmission Date: 20221026
  Serious: No
  Sender: FDA-Public Use
  Company Number: US-ALLERGAN-2214902US

PATIENT
  Sex: Female

DRUGS (2)
  1. RECTIV [Suspect]
     Active Substance: NITROGLYCERIN
     Indication: Anal fissure
     Dosage: UNK
     Route: 054
     Dates: start: 202204
  2. RECTIV [Suspect]
     Active Substance: NITROGLYCERIN
     Indication: Proctalgia

REACTIONS (5)
  - Overdose [Unknown]
  - Restlessness [Recovered/Resolved]
  - Discomfort [Recovered/Resolved]
  - Anorectal discomfort [Recovered/Resolved]
  - Inappropriate schedule of product administration [Unknown]

NARRATIVE: CASE EVENT DATE: 20220503
